FAERS Safety Report 12589064 (Version 1)
Quarter: 2016Q3

REPORT INFORMATION
  Report Type: Spontaneous
  Country: US (occurrence: US)
  Receive Date: 20160725
  Receipt Date: 20160725
  Transmission Date: 20161109
  Serious: No
  Sender: FDA-Public Use
  Company Number: US-JNJFOC-20160620666

PATIENT
  Sex: Female

DRUGS (8)
  1. CHILDRENS ZYRTEC ALLERGY [Suspect]
     Active Substance: CETIRIZINE HYDROCHLORIDE
     Indication: URTICARIA
     Dosage: 2 DISSOLVE TAB DAILY
     Route: 048
  2. CHILDRENS ZYRTEC ALLERGY [Suspect]
     Active Substance: CETIRIZINE HYDROCHLORIDE
     Indication: IMMUNODEFICIENCY
     Dosage: 1 DISSOLVE TAB DAILY, 4 TO 6 MONTHS
     Route: 048
  3. CHILDRENS ZYRTEC ALLERGY [Suspect]
     Active Substance: CETIRIZINE HYDROCHLORIDE
     Indication: IMMUNODEFICIENCY
     Dosage: 2 DISSOLVE TAB DAILY
     Route: 048
  4. CHILDRENS ZYRTEC ALLERGY [Suspect]
     Active Substance: CETIRIZINE HYDROCHLORIDE
     Indication: IMMUNODEFICIENCY
     Dosage: 2 DISSOLVE TAB PER DAY, 1 IN THE MORNING AND 1 IN THE EVENING
     Route: 048
  5. CHILDRENS ZYRTEC ALLERGY [Suspect]
     Active Substance: CETIRIZINE HYDROCHLORIDE
     Indication: IMMUNODEFICIENCY
     Dosage: 1 DISSOLVE TAB PER DAY
     Route: 048
  6. CHILDRENS ZYRTEC ALLERGY [Suspect]
     Active Substance: CETIRIZINE HYDROCHLORIDE
     Indication: URTICARIA
     Dosage: 1 DISSOLVE TAB DAILY, 4 TO 6 MONTHS
     Route: 048
  7. CHILDRENS ZYRTEC ALLERGY [Suspect]
     Active Substance: CETIRIZINE HYDROCHLORIDE
     Indication: URTICARIA
     Dosage: 2 DISSOLVE TAB PER DAY, 1 IN THE MORNING AND 1 IN THE EVENING
     Route: 048
  8. CHILDRENS ZYRTEC ALLERGY [Suspect]
     Active Substance: CETIRIZINE HYDROCHLORIDE
     Indication: URTICARIA
     Dosage: 1 DISSOLVE TAB PER DAY
     Route: 048

REACTIONS (5)
  - Urticaria [Unknown]
  - Prescribed overdose [Unknown]
  - Off label use [Unknown]
  - Drug ineffective for unapproved indication [Unknown]
  - Therapeutic response unexpected [Unknown]
